FAERS Safety Report 24696987 (Version 1)
Quarter: 2024Q4

REPORT INFORMATION
  Report Type: Spontaneous
  Country: KR (occurrence: KR)
  Receive Date: 20241204
  Receipt Date: 20241204
  Transmission Date: 20250115
  Serious: No
  Sender: PFIZER
  Company Number: KR-PFIZER INC-PV202400154247

PATIENT

DRUGS (1)
  1. GENOTROPIN [Suspect]
     Active Substance: SOMATROPIN
     Dosage: 3 IU, 6 TIMES A WEEK

REACTIONS (4)
  - Needle issue [Unknown]
  - Patient-device incompatibility [Unknown]
  - Injection site pain [Unknown]
  - Incorrect dose administered by device [Unknown]
